FAERS Safety Report 24079790 (Version 1)
Quarter: 2024Q3

REPORT INFORMATION
  Report Type: Spontaneous
  Country: US (occurrence: US)
  Receive Date: 20240711
  Receipt Date: 20240711
  Transmission Date: 20241016
  Serious: No
  Sender: ROCHE
  Company Number: US-ROCHE-10000022782

PATIENT
  Sex: Female

DRUGS (2)
  1. ALECENSA [Suspect]
     Active Substance: ALECTINIB HYDROCHLORIDE
     Indication: Lung neoplasm malignant
     Route: 048
     Dates: start: 202405
  2. CAPECITABINE [Concomitant]
     Active Substance: CAPECITABINE

REACTIONS (6)
  - Stomatitis [Unknown]
  - Mouth ulceration [Unknown]
  - Oral pain [Unknown]
  - Oedema [Unknown]
  - Constipation [Unknown]
  - Dyschezia [Unknown]
